FAERS Safety Report 8285728-8 (Version None)
Quarter: 2012Q2

REPORT INFORMATION
  Report Type: 
  Country: None (occurrence: None)
  Receive Date: 20120413
  Receipt Date: 20120410
  Transmission Date: 20120825
  Serious: Yes (Death)
  Sender: FDA-Public Use
  Company Number: JP-ALLERGAN-1205275US

PATIENT
  Age: 81 Year
  Sex: Male

DRUGS (4)
  1. MENEST [Concomitant]
     Indication: PRODUCT USED FOR UNKNOWN INDICATION
     Route: 048
  2. MUCODYNE [Concomitant]
     Indication: PRODUCT USED FOR UNKNOWN INDICATION
     Route: 048
  3. BOTOX [Suspect]
     Indication: PROGRESSIVE SUPRANUCLEAR PALSY
     Dosage: 100 IU, SINGLE
     Route: 030
     Dates: start: 20120227, end: 20120227
  4. BISOLVON [Concomitant]
     Indication: PRODUCT USED FOR UNKNOWN INDICATION
     Route: 048

REACTIONS (1)
  - CHRONIC RESPIRATORY FAILURE [None]
